FAERS Safety Report 10409781 (Version 2)
Quarter: 2014Q3

REPORT INFORMATION
  Report Type: Spontaneous
  Country: IN (occurrence: IN)
  Receive Date: 20140826
  Receipt Date: 20140826
  Transmission Date: 20150326
  Serious: Yes (Hospitalization)
  Sender: FDA-Public Use
  Company Number: IN-SA-2014SA103977

PATIENT
  Age: 72 Year
  Sex: Female

DRUGS (12)
  1. ZOLPIDEM [Suspect]
     Active Substance: ZOLPIDEM\ZOLPIDEM TARTRATE
     Indication: INSOMNIA
     Dosage: TAB ZOLPIDEM WAS REDUCED BY 15 MG EVERY THIRD DAY
     Route: 065
  2. ZOLPIDEM [Suspect]
     Active Substance: ZOLPIDEM\ZOLPIDEM TARTRATE
     Indication: INSOMNIA
     Dosage: ESCALATED  TO 300 MG/DAY
     Route: 065
  3. ZOLPIDEM [Suspect]
     Active Substance: ZOLPIDEM\ZOLPIDEM TARTRATE
     Indication: INSOMNIA
     Route: 065
  4. ZOLPIDEM [Suspect]
     Active Substance: ZOLPIDEM\ZOLPIDEM TARTRATE
     Indication: INSOMNIA
     Dosage: TAB ZOLPIDEM WAS REDUCED BY 15 MG EVERY THIRD DAY
     Route: 065
  5. GABAPENTIN. [Suspect]
     Active Substance: GABAPENTIN
     Indication: DRUG DETOXIFICATION
     Dosage: CAPSULE GABAPENTIN WHICH WAS INITIATED AT 300 MG ONE IN THE MORNING AND TWO TABLET AT NIGHT
     Route: 065
  6. GABAPENTIN. [Suspect]
     Active Substance: GABAPENTIN
     Indication: DRUG DETOXIFICATION
     Dosage: GRADUALLY INCREASED BY 100 MG EVERY FIFTH DAY TO THE DOSE OF 1200 PER DAY
     Route: 065
  7. GABAPENTIN. [Suspect]
     Active Substance: GABAPENTIN
     Indication: DRUG DETOXIFICATION
     Dosage: TAPERED TO 600 MG PER DAY OVER A MONTH
     Route: 065
  8. ZOLPIDEM [Suspect]
     Active Substance: ZOLPIDEM\ZOLPIDEM TARTRATE
     Indication: INSOMNIA
     Route: 065
  9. ZOLPIDEM [Suspect]
     Active Substance: ZOLPIDEM\ZOLPIDEM TARTRATE
     Indication: INSOMNIA
     Dosage: GRADUALLY DECREASED TO 150 MG/DAY OVER A PERIOD OF 28 DAYS
     Route: 065
  10. GABAPENTIN. [Suspect]
     Active Substance: GABAPENTIN
     Indication: DRUG DETOXIFICATION
     Dosage: TAPERED TO 600 MG PER DAY OVER A MONTH
     Route: 065
  11. ZOLPIDEM [Suspect]
     Active Substance: ZOLPIDEM\ZOLPIDEM TARTRATE
     Indication: INSOMNIA
     Dosage: TAB ZOLPIDEM WAS REDUCED BY 15 MG EVERY THIRD DAY
     Route: 065
  12. GABAPENTIN. [Suspect]
     Active Substance: GABAPENTIN
     Indication: DRUG DETOXIFICATION
     Route: 065

REACTIONS (11)
  - Asthenia [Recovered/Resolved]
  - Dysphoria [Recovered/Resolved]
  - Drug dependence [Recovered/Resolved]
  - Disturbance in attention [Recovered/Resolved]
  - Tremor [Recovered/Resolved]
  - Off label use [Unknown]
  - Anxiety [Recovered/Resolved]
  - Irritability [Recovered/Resolved]
  - Psychomotor hyperactivity [Recovered/Resolved]
  - Overdose [Unknown]
  - Drug dependence [Unknown]
